FAERS Safety Report 7163552-7 (Version None)
Quarter: 2010Q4

REPORT INFORMATION
  Report Type: 
  Country: None (occurrence: None)
  Receive Date: 20101210
  Receipt Date: 20101210
  Transmission Date: 20110411
  Serious: No
  Sender: FDA-Public Use
  Company Number: None

PATIENT
  Age: 9 Month
  Sex: Female
  Weight: 4.97 kg

DRUGS (1)
  1. HEPARIN [Suspect]
     Dosage: 1500 UNITS IV BOLUS
     Route: 040
     Dates: start: 20101207, end: 20101207

REACTIONS (2)
  - COAGULATION TIME SHORTENED [None]
  - PRODUCT QUALITY ISSUE [None]
